FAERS Safety Report 17484147 (Version 1)
Quarter: 2020Q1

REPORT INFORMATION
  Report Type: Spontaneous
  Country: HU (occurrence: HU)
  Receive Date: 20200302
  Receipt Date: 20200302
  Transmission Date: 20200409
  Serious: Yes (Other)
  Sender: FDA-Public Use
  Company Number: HU-CIRCASSIA PHARMACEUTICALS INC-2020HU001268

PATIENT

DRUGS (1)
  1. ACLIDINIUM + FORMOTEROL [Suspect]
     Active Substance: ACLIDINIUM BROMIDE\FORMOTEROL FUMARATE
     Indication: PRODUCT USED FOR UNKNOWN INDICATION
     Dosage: 340/12 UG
     Route: 055

REACTIONS (2)
  - Choking [Unknown]
  - Drug delivery system issue [Unknown]
